FAERS Safety Report 23830415 (Version 1)
Quarter: 2024Q2

REPORT INFORMATION
  Report Type: Spontaneous
  Country: BG (occurrence: BG)
  Receive Date: 20240508
  Receipt Date: 20240508
  Transmission Date: 20240716
  Serious: Yes (Hospitalization)
  Sender: FDA-Public Use
  Company Number: BG-Indicus Pharma-001015

PATIENT
  Age: 74 Year
  Sex: Male

DRUGS (8)
  1. METFORMIN HYDROCHLORIDE [Suspect]
     Active Substance: METFORMIN HYDROCHLORIDE
     Indication: Diabetes mellitus
     Dosage: THREE TIMES A DAY
  2. HYDROCHLOROTHIAZIDE\LOSARTAN POTASSIUM [Suspect]
     Active Substance: HYDROCHLOROTHIAZIDE\LOSARTAN POTASSIUM
     Indication: Hypertension
     Dosage: 50MG/12.5MG ONCE DAILY IN THE MORNING FOR OVER 10 YEARS
  3. NIFEDIPINE [Suspect]
     Active Substance: NIFEDIPINE
     Indication: Hypertension
     Dosage: 20 MG TWICE DAILY ONCE IN THE MORNING AND ONCE IN THE EVENING FOR OVER 10 YEARS
  4. MOXONIDINE [Suspect]
     Active Substance: MOXONIDINE
     Indication: Hypertension
     Dosage: 0.2 MG TWICE DAILY ONCE IN THE MORNING AND ONCE ?IN THE EVENING FOR OVER 5 YEARS
  5. METOPROLOL TARTRATE [Suspect]
     Active Substance: METOPROLOL TARTRATE
     Indication: Hypertension
     Dosage: 50 MG HALF A TABLET IN THE MORNING FOR THE PAST 3 YEARS
  6. GLIMEPIRIDE [Suspect]
     Active Substance: GLIMEPIRIDE
     Indication: Diabetes mellitus
     Dosage: ONCE IN THE MORNING FOR 15 ?YEARS
  7. PENTOXIFYLLINE [Suspect]
     Active Substance: PENTOXIFYLLINE
     Indication: Product used for unknown indication
     Dosage: ONCE IN THE EVENING FOR 20 YEARS
  8. THIOCTIC ACID [Suspect]
     Active Substance: THIOCTIC ACID
     Indication: Product used for unknown indication
     Dosage: ONCE IN THE MORNING BOTH ADMINISTRATED FOR 20 YEARS

REACTIONS (1)
  - Squamous cell carcinoma of skin [Not Recovered/Not Resolved]
